FAERS Safety Report 16012217 (Version 1)
Quarter: 2019Q1

REPORT INFORMATION
  Report Type: Spontaneous
  Country: RO (occurrence: RO)
  Receive Date: 20190227
  Receipt Date: 20190227
  Transmission Date: 20190418
  Serious: Yes (Hospitalization)
  Sender: FDA-Public Use
  Company Number: RO-ASTRAZENECA-2019SE29461

PATIENT
  Age: 57 Year
  Sex: Male
  Weight: 118 kg

DRUGS (4)
  1. HUMALOG [Concomitant]
     Active Substance: INSULIN LISPRO
     Indication: DIABETES MELLITUS
     Dosage: 200 UNITS/ML, 60 IU/DAY
     Route: 058
     Dates: start: 20180509
  2. SIOFOR 1000 [Concomitant]
     Indication: DIABETES MELLITUS
     Route: 048
     Dates: start: 20180209
  3. FORXIGA [Suspect]
     Active Substance: DAPAGLIFLOZIN
     Indication: DIABETES MELLITUS
     Route: 048
     Dates: start: 20181106, end: 20190201
  4. TOUJEO [Concomitant]
     Active Substance: INSULIN GLARGINE
     Indication: DIABETES MELLITUS
     Dosage: 86 IU/DAY
     Route: 058
     Dates: start: 20180509

REACTIONS (1)
  - Fournier^s gangrene [Not Recovered/Not Resolved]

NARRATIVE: CASE EVENT DATE: 20190119
